FAERS Safety Report 7610368-0 (Version None)
Quarter: 2011Q3

REPORT INFORMATION
  Report Type: 
  Country: None (occurrence: None)
  Receive Date: 20110715
  Receipt Date: 20110706
  Transmission Date: 20111222
  Serious: Yes (Hospitalization)
  Sender: FDA-Public Use
  Company Number: CA-JNJFOC-20110503953

PATIENT
  Sex: Male
  Weight: 84 kg

DRUGS (29)
  1. VITAMIN B-12 [Concomitant]
     Indication: VITAMIN B12 DEFICIENCY
     Route: 030
     Dates: start: 19990101
  2. CALCIUM CARBONATE [Concomitant]
     Indication: PROPHYLAXIS
     Route: 048
     Dates: start: 20080610
  3. MORPHINE [Concomitant]
     Indication: CANCER PAIN
     Route: 048
     Dates: start: 20101005, end: 20110422
  4. ABIRATERONE ACETATE [Suspect]
     Route: 048
     Dates: start: 20110125, end: 20110620
  5. PREDNISONE [Suspect]
     Route: 048
     Dates: start: 20110125
  6. DILTIAZEM [Concomitant]
     Indication: ANGINA PECTORIS
     Route: 048
     Dates: start: 20050107
  7. NITROGLYCERIN SPRAY [Concomitant]
     Indication: ANGINA PECTORIS
     Route: 055
     Dates: start: 20050101
  8. DILAUDID [Concomitant]
     Indication: CANCER PAIN
     Route: 048
     Dates: start: 20110223, end: 20110501
  9. GRAVOL TAB [Concomitant]
     Indication: VOMITING
     Route: 048
     Dates: start: 20110401
  10. ABIRATERONE ACETATE [Suspect]
     Indication: PROSTATE CANCER METASTATIC
     Route: 048
     Dates: start: 20080902, end: 20110124
  11. MELOXICAM [Concomitant]
     Indication: ARTHRITIS
     Route: 048
     Dates: start: 20071026
  12. FLUTICASONE PROPIONATE [Concomitant]
     Indication: ASTHMA
     Route: 055
     Dates: start: 20080920
  13. LUPRON [Concomitant]
     Indication: PROSTATE CANCER
     Route: 058
     Dates: start: 20080902
  14. EFFEXOR [Concomitant]
     Route: 048
     Dates: start: 20091017, end: 20091026
  15. SENOKOT [Concomitant]
     Indication: CONSTIPATION PROPHYLAXIS
     Route: 048
     Dates: start: 20110223
  16. HYDROMORPHONE HCL [Concomitant]
     Route: 048
     Dates: start: 20110501
  17. VITAMIN D [Concomitant]
     Indication: PROPHYLAXIS
     Route: 048
     Dates: start: 20080610
  18. NITRO PATCH (NITROGLYCERIN) [Concomitant]
     Indication: ANGINA PECTORIS
     Route: 062
     Dates: start: 20050101
  19. HYDROMORPHONE HCL [Concomitant]
     Indication: CANCER PAIN
     Route: 048
     Dates: start: 20110422
  20. PREDNISONE [Suspect]
     Indication: PROSTATE CANCER METASTATIC
     Route: 048
     Dates: start: 20080807, end: 20110124
  21. ALBUTEROL [Concomitant]
     Indication: ASTHMA
     Route: 055
     Dates: start: 20080920
  22. FLOMAX [Concomitant]
     Indication: NOCTURIA
     Route: 048
     Dates: start: 20090414
  23. EFFEXOR [Concomitant]
     Indication: HYPERHIDROSIS
     Route: 048
     Dates: start: 20091027
  24. STATEX [Concomitant]
     Indication: CANCER PAIN
     Route: 048
     Dates: start: 20100301
  25. STATEX [Concomitant]
     Route: 048
     Dates: start: 20090212
  26. GRAVOL TAB [Concomitant]
     Indication: NAUSEA
     Route: 048
     Dates: start: 20110401
  27. PROCHLORPERAZINE TAB [Concomitant]
     Indication: VOMITING
     Route: 048
     Dates: start: 20110501
  28. PROCHLORPERAZINE TAB [Concomitant]
     Indication: NAUSEA
     Route: 048
     Dates: start: 20110501
  29. FOSAMAX [Concomitant]
     Indication: OSTEOPOROSIS PROPHYLAXIS
     Route: 048
     Dates: start: 20101007

REACTIONS (1)
  - TRANSIENT ISCHAEMIC ATTACK [None]
